FAERS Safety Report 5146837-5 (Version None)
Quarter: 2006Q4

REPORT INFORMATION
  Report Type: 
  Country: None (occurrence: None)
  Receive Date: 20061109
  Receipt Date: 20061027
  Transmission Date: 20070319
  Serious: Yes (Other)
  Sender: FDA-Public Use
  Company Number: PHBS2006CH17168

PATIENT
  Age: 60 Year
  Sex: Male

DRUGS (7)
  1. SANDIMMUNE [Suspect]
     Indication: HEART TRANSPLANT
     Dosage: 75 MG, BID
  2. PANTOZOL [Suspect]
     Dosage: 20 MG, BID
  3. CELLCEPT [Concomitant]
     Dosage: 750 MG, BID
  4. PREDNISONE TAB [Concomitant]
     Dosage: 7.5 MG/DAY
  5. NEURONTIN [Concomitant]
     Dosage: 600 MG, BID
  6. BELOC ZOK [Concomitant]
     Dosage: 50 MG, BID
  7. BETASERC [Concomitant]
     Dosage: 10 MG, BID

REACTIONS (3)
  - CORONARY ARTERY DISEASE [None]
  - MYOCARDIAL ISCHAEMIA [None]
  - RHABDOMYOLYSIS [None]
